FAERS Safety Report 25895233 (Version 1)
Quarter: 2025Q4

REPORT INFORMATION
  Report Type: Spontaneous
  Country: US (occurrence: US)
  Receive Date: 20251008
  Receipt Date: 20251008
  Transmission Date: 20260117
  Serious: No
  Sender: APOTEX
  Company Number: US-APOTEX-2025AP030787

PATIENT
  Age: 2 Year
  Sex: Female

DRUGS (6)
  1. CILOSTAZOL [Suspect]
     Active Substance: CILOSTAZOL
     Indication: Arterial disorder
     Dosage: 50 MILLIGRAM, QD
     Route: 065
  2. CILOSTAZOL [Suspect]
     Active Substance: CILOSTAZOL
     Indication: Moyamoya disease
     Dosage: 100 MILLIGRAM, QD
     Route: 065
  3. CILOSTAZOL [Suspect]
     Active Substance: CILOSTAZOL
     Indication: Stenosis
  4. ASPIRIN [Suspect]
     Active Substance: ASPIRIN
     Indication: Moyamoya disease
     Dosage: 3-5 MG PER KG UP TO 81 MG, QD
     Route: 065
  5. ASPIRIN [Suspect]
     Active Substance: ASPIRIN
     Indication: Arterial disorder
  6. ASPIRIN [Suspect]
     Active Substance: ASPIRIN
     Indication: Stenosis

REACTIONS (1)
  - Treatment noncompliance [Unknown]
